FAERS Safety Report 15155794 (Version 1)
Quarter: 2018Q3

REPORT INFORMATION
  Report Type: Spontaneous
  Country: DE (occurrence: DE)
  Receive Date: 20180717
  Receipt Date: 20180717
  Transmission Date: 20181010
  Serious: Yes (Hospitalization)
  Sender: FDA-Public Use
  Company Number: DE-US WORLDMEDS, LLC-STA_00017848

PATIENT
  Sex: Female
  Weight: 68 kg

DRUGS (7)
  1. APOMORPHINE HYDROCHLORIDE [Suspect]
     Active Substance: APOMORPHINE HYDROCHLORIDE
     Indication: PARKINSON^S DISEASE
     Dosage: FROM 6.00 AM UNTIL 10.30 PM DAILY, NO BOLUS
     Route: 058
     Dates: start: 201309, end: 20150227
  2. CARVEDILOL 6.25 [Concomitant]
  3. NACOM RET. 200MG [Concomitant]
  4. MOVICOL [Concomitant]
     Active Substance: POLYETHYLENE GLYCOL 3350\POTASSIUM CHLORIDE\SODIUM BICARBONATE\SODIUM CHLORIDE
  5. LOSARTAN. [Concomitant]
     Active Substance: LOSARTAN
  6. REQUIP 2MG [Concomitant]
  7. REQUIP 16MG [Concomitant]

REACTIONS (1)
  - Haemolytic anaemia [Unknown]
